FAERS Safety Report 7673421-1 (Version None)
Quarter: 2011Q3

REPORT INFORMATION
  Report Type: 
  Country: None (occurrence: None)
  Receive Date: 20110810
  Receipt Date: 20110808
  Transmission Date: 20111222
  Serious: No
  Sender: FDA-Public Use
  Company Number: US-PFIZER INC-2011182455

PATIENT
  Sex: Female
  Weight: 93.424 kg

DRUGS (6)
  1. IMDUR [Concomitant]
     Indication: ANGINA PECTORIS
     Dosage: 15MG (HALF TABLET OF 30 MG)
  2. LYRICA [Suspect]
     Indication: DYSKINESIA
  3. LOVAZA [Concomitant]
     Indication: BLOOD CHOLESTEROL ABNORMAL
     Dosage: 1 G, DAILY
  4. BENADRYL [Suspect]
     Indication: PRURITUS
     Dosage: UNK
  5. ZANTAC [Suspect]
     Indication: PRURITUS
     Dosage: UNK
  6. LYRICA [Suspect]
     Indication: MYOCLONUS
     Dosage: 150 MG, DAILY

REACTIONS (1)
  - PRURITUS [None]
